FAERS Safety Report 21620085 (Version 2)
Quarter: 2022Q4

REPORT INFORMATION
  Report Type: Report from Study
  Country: US (occurrence: US)
  Receive Date: 20221121
  Receipt Date: 20221227
  Transmission Date: 20230112
  Serious: Yes (Other)
  Sender: FDA-Public Use
  Company Number: US-ABBVIE-4170753

PATIENT
  Sex: Female

DRUGS (2)
  1. RINVOQ [Suspect]
     Active Substance: UPADACITINIB
     Indication: Rheumatoid arthritis
     Dosage: 15 MILLIGRAMS
     Route: 048
     Dates: start: 202202
  2. RINVOQ [Suspect]
     Active Substance: UPADACITINIB
     Indication: Rheumatoid arthritis
     Dosage: 15 MILLIGRAMS
     Route: 048
     Dates: start: 20221210

REACTIONS (15)
  - Lymphoedema [Unknown]
  - Urinary tract infection [Recovered/Resolved]
  - Kidney infection [Unknown]
  - Rheumatoid arthritis [Unknown]
  - Arthralgia [Unknown]
  - Irritability [Unknown]
  - Arthralgia [Unknown]
  - Pruritus [Unknown]
  - Pain in extremity [Unknown]
  - Scratch [Recovered/Resolved]
  - Peripheral swelling [Unknown]
  - Musculoskeletal stiffness [Unknown]
  - Erythema [Unknown]
  - Pain [Unknown]
  - Cellulite [Recovered/Resolved]

NARRATIVE: CASE EVENT DATE: 20220101
